FAERS Safety Report 5043297-X (Version None)
Quarter: 2006Q3

REPORT INFORMATION
  Report Type: 
  Country: None (occurrence: None)
  Receive Date: 20060703
  Receipt Date: 20060703
  Transmission Date: 20061208
  Serious: Yes (Other)
  Sender: FDA-Public Use
  Company Number: None

PATIENT
  Age: 22 Year
  Sex: Male
  Weight: 59.8748 kg

DRUGS (2)
  1. GEODON [Suspect]
     Indication: AFFECTIVE DISORDER
     Dosage: 40 MG BID PO
     Route: 048
     Dates: start: 20060628, end: 20060701
  2. GEODON [Suspect]
     Indication: DEPRESSION
     Dosage: 40 MG BID PO
     Route: 048
     Dates: start: 20060628, end: 20060701

REACTIONS (5)
  - ALCOHOL USE [None]
  - DRUG DEPENDENCE [None]
  - DYSTONIA [None]
  - MUSCULOSKELETAL STIFFNESS [None]
  - RESTLESSNESS [None]
